FAERS Safety Report 9425139 (Version 1)
Quarter: 2013Q3

REPORT INFORMATION
  Report Type: Spontaneous
  Country: GB (occurrence: GB)
  Receive Date: 20130729
  Receipt Date: 20130729
  Transmission Date: 20140515
  Serious: Yes (Disabling)
  Sender: FDA-Public Use
  Company Number: GB-PFIZER INC-2013216969

PATIENT
  Age: 71 Year
  Sex: Male
  Weight: 94 kg

DRUGS (9)
  1. CHAMPIX [Suspect]
     Indication: SMOKING CESSATION THERAPY
     Dosage: UNK
  2. AMITRIPTYLINE HYDROCHLORIDE [Concomitant]
     Dosage: UNK
     Dates: start: 20130314, end: 20130411
  3. ACETYLSALICYLIC ACID [Concomitant]
     Dosage: UNK
     Dates: start: 20130314, end: 20130411
  4. BISOPROLOL [Concomitant]
     Dosage: UNK
     Dates: start: 20130314, end: 20130411
  5. ESCITALOPRAM [Concomitant]
     Dosage: UNK
     Dates: start: 20130314, end: 20130411
  6. LISINOPRIL [Concomitant]
     Dosage: UNK
     Dates: start: 20130314, end: 20130411
  7. MIRTAZAPINE [Concomitant]
     Dosage: UNK
     Dates: start: 20130314, end: 20130509
  8. SIMVASTATIN [Concomitant]
     Dosage: UNK
     Dates: start: 20130314, end: 20130411
  9. ZOPICLONE [Concomitant]
     Dosage: UNK
     Dates: start: 20130314, end: 20130411

REACTIONS (2)
  - Dyspnoea exertional [Recovering/Resolving]
  - Oxygen saturation decreased [Recovering/Resolving]
